FAERS Safety Report 20101772 (Version 1)
Quarter: 2021Q4

REPORT INFORMATION
  Report Type: Spontaneous
  Country: US (occurrence: US)
  Receive Date: 20211123
  Receipt Date: 20211123
  Transmission Date: 20220303
  Serious: Yes (Other)
  Sender: FDA-Public Use
  Company Number: US-009507513-2111USA006875

PATIENT
  Age: 38 Year
  Sex: Male

DRUGS (2)
  1. TEMODAR [Suspect]
     Active Substance: TEMOZOLOMIDE
     Indication: Pineal neoplasm
     Dosage: 200 MG/M2 WITH 5 DAYS ON AND 23 DAYS OFF
     Route: 048
  2. TEMODAR [Suspect]
     Active Substance: TEMOZOLOMIDE
     Dosage: 150, MG/M2, 12 CYCLES OF 5 DAYS ON AND 23 DAYS OFF
     Route: 048

REACTIONS (3)
  - Thrombocytopenia [Recovered/Resolved]
  - Fatigue [Unknown]
  - Off label use [Unknown]
